FAERS Safety Report 6783138-3 (Version None)
Quarter: 2010Q2

REPORT INFORMATION
  Report Type: 
  Country: None (occurrence: None)
  Receive Date: 20100622
  Receipt Date: 20100610
  Transmission Date: 20101027
  Serious: Yes (Other)
  Sender: FDA-Public Use
  Company Number: US-PFIZER INC-2010041352

PATIENT
  Sex: Male
  Weight: 120 kg

DRUGS (13)
  1. SUTENT [Suspect]
     Indication: METASTATIC RENAL CELL CARCINOMA
     Dosage: 50 MG, DAILY
     Route: 048
     Dates: start: 20090930
  2. INSULIN [Concomitant]
     Indication: DIABETES MELLITUS
     Dosage: UNK
  3. LANTUS [Concomitant]
     Indication: DIABETES MELLITUS
     Dosage: UNK
  4. NOVOLOG [Concomitant]
     Indication: DIABETES MELLITUS
     Dosage: 50 UNITS, 2X/DAY
  5. BYETTA [Concomitant]
     Indication: DIABETES MELLITUS
     Dosage: 2.4 ML, UNK
  6. METFORMIN [Concomitant]
     Indication: DIABETES MELLITUS
     Dosage: 1000 MG, UNK
  7. FUROSEMIDE [Concomitant]
     Dosage: 20 MG, DAILY
  8. DILTIAZEM [Concomitant]
     Indication: HYPERTENSION
     Dosage: 120 MG, UNK
  9. OXYCODONE [Concomitant]
     Dosage: 325 MG, UNK
  10. FENTANYL [Concomitant]
     Dosage: 75 UG, UNK
     Route: 062
  11. SIMVASTATIN [Concomitant]
     Dosage: 40 MG, UNK
  12. VENLAFAXINE [Concomitant]
     Dosage: 37 MG, 4X/DAY
  13. SYNTHROID [Concomitant]
     Indication: THYROID DISORDER
     Dosage: UNK

REACTIONS (6)
  - ASTHENIA [None]
  - CONFUSIONAL STATE [None]
  - GAIT DISTURBANCE [None]
  - MEMORY IMPAIRMENT [None]
  - PSORIASIS [None]
  - SPONDYLITIS [None]
